FAERS Safety Report 5496908-9 (Version None)
Quarter: 2007Q4

REPORT INFORMATION
  Report Type: 
  Country: None (occurrence: None)
  Receive Date: 20071023
  Receipt Date: 20071018
  Transmission Date: 20080405
  Serious: Yes (Life-Threatening)
  Sender: FDA-Public Use
  Company Number: 2007-165530-NL

PATIENT
  Age: 39 Year
  Sex: Female

DRUGS (1)
  1. ETONOGESTREL (BATCH #: 652032) [Suspect]
     Indication: MENORRHAGIA
     Dosage: DF
     Dates: start: 20070626, end: 20071010

REACTIONS (1)
  - ANAPHYLACTIC SHOCK [None]
